FAERS Safety Report 7520919-2 (Version None)
Quarter: 2011Q2

REPORT INFORMATION
  Report Type: 
  Country: None (occurrence: None)
  Receive Date: 20110603
  Receipt Date: 20101126
  Transmission Date: 20111010
  Serious: Yes (Hospitalization)
  Sender: FDA-Public Use
  Company Number: CH-BAYER-2010-000127

PATIENT
  Age: 44 Year
  Sex: Female
  Weight: 61 kg

DRUGS (2)
  1. YASMIN [Suspect]
     Indication: CONTRACEPTION
     Dosage: 1 DF, QD
     Route: 048
     Dates: start: 20100715, end: 20101002
  2. YASMIN [Suspect]
     Indication: MENORRHAGIA

REACTIONS (6)
  - HYDROCEPHALUS [None]
  - NAUSEA [None]
  - PHOTOPHOBIA [None]
  - CEREBELLAR INFARCTION [None]
  - CEREBELLAR SYNDROME [None]
  - HEADACHE [None]
